FAERS Safety Report 4917867-0 (Version None)
Quarter: 2006Q1

REPORT INFORMATION
  Report Type: 
  Country: None (occurrence: None)
  Receive Date: 20060214
  Receipt Date: 20060203
  Transmission Date: 20060701
  Serious: Yes (Other)
  Sender: FDA-Public Use
  Company Number: 200610521GDS

PATIENT
  Age: 60 Year
  Sex: Male

DRUGS (1)
  1. CIPRO [Suspect]
     Dosage: BID, ORAL
     Route: 048

REACTIONS (5)
  - DEHYDRATION [None]
  - LETHARGY [None]
  - MALAISE [None]
  - NEUTROPENIA [None]
  - PYREXIA [None]
